FAERS Safety Report 9462418 (Version 1)
Quarter: 2013Q3

REPORT INFORMATION
  Report Type: Spontaneous
  Country: US (occurrence: US)
  Receive Date: 20130816
  Receipt Date: 20130816
  Transmission Date: 20140515
  Serious: Yes (Other)
  Sender: FDA-Public Use
  Company Number: CHPA2013US012914

PATIENT
  Age: 66 Year
  Sex: Female

DRUGS (5)
  1. MAALOX UNKNOWN [Suspect]
     Indication: NAUSEA
     Dosage: UNK, PRN
     Route: 048
  2. MAALOX UNKNOWN [Suspect]
     Indication: ABDOMINAL DISTENSION
  3. MAALOX ANTACID/ANTIGAS MAX QDTABS WILDB [Suspect]
     Indication: NAUSEA
     Dosage: 1/4 TO 1 DF, PRN
     Route: 048
     Dates: start: 1989
  4. MAALOX ANTACID/ANTIGAS MAX QDTABS WILDB [Suspect]
     Indication: ABDOMINAL DISTENSION
  5. GAS-X UNKNOWN [Suspect]
     Dosage: UNK, ONCE/SINGLE
     Route: 048

REACTIONS (4)
  - Sjogren^s syndrome [Not Recovered/Not Resolved]
  - Nausea [Recovered/Resolved]
  - Therapeutic response unexpected [Unknown]
  - Off label use [Unknown]
